FAERS Safety Report 7525326-4 (Version None)
Quarter: 2011Q2

REPORT INFORMATION
  Report Type: 
  Country: None (occurrence: None)
  Receive Date: 20110603
  Receipt Date: 20110603
  Transmission Date: 20111010
  Serious: Yes (Hospitalization)
  Sender: FDA-Public Use
  Company Number: None

PATIENT
  Age: 69 Year
  Sex: Female

DRUGS (2)
  1. SARGRAMOSTIM [Suspect]
     Indication: IMMUNISATION
     Dosage: SQ
     Route: 058
  2. SARGRAMOSTIM [Suspect]
     Indication: BREAST CANCER
     Dosage: SQ
     Route: 058

REACTIONS (2)
  - FACE OEDEMA [None]
  - RASH [None]
